FAERS Safety Report 7180471-0 (Version None)
Quarter: 2010Q4

REPORT INFORMATION
  Report Type: 
  Country: None (occurrence: None)
  Receive Date: 20101221
  Receipt Date: 20101213
  Transmission Date: 20110411
  Serious: Yes (Death)
  Sender: FDA-Public Use
  Company Number: GB-ABBOTT-10P-167-0656575-00

PATIENT
  Age: 33 Year
  Sex: Female

DRUGS (3)
  1. EPILIM [Suspect]
     Indication: CONVULSION
     Route: 048
     Dates: start: 20090101, end: 20090507
  2. CLOZAPINE [Suspect]
     Indication: SCHIZOPHRENIA
     Route: 048
     Dates: start: 20050101, end: 20090504
  3. VENLAFAXINE [Suspect]
     Indication: DEPRESSION
     Route: 048
     Dates: start: 20050101, end: 20090507

REACTIONS (4)
  - CYANOSIS [None]
  - EPILEPSY [None]
  - FALL [None]
  - VOMITING [None]
